FAERS Safety Report 15425921 (Version 1)
Quarter: 2018Q3

REPORT INFORMATION
  Report Type: Spontaneous
  Country: US (occurrence: US)
  Receive Date: 20180925
  Receipt Date: 20180925
  Transmission Date: 20181010
  Serious: No
  Sender: FDA-Public Use
  Company Number: US-BAYER-2018-176467

PATIENT
  Age: 82 Year
  Sex: Female
  Weight: 213 kg

DRUGS (2)
  1. ALEVE [Suspect]
     Active Substance: NAPROXEN SODIUM
     Indication: PAIN
     Dosage: 2 DF, PRN
     Route: 048
     Dates: end: 20180917
  2. PREDNISONE. [Concomitant]
     Active Substance: PREDNISONE

REACTIONS (3)
  - Somnolence [Unknown]
  - Expired product administered [Unknown]
  - Hyperphagia [Unknown]

NARRATIVE: CASE EVENT DATE: 20180917
